FAERS Safety Report 22339756 (Version 6)
Quarter: 2024Q3

REPORT INFORMATION
  Report Type: Spontaneous
  Country: DE (occurrence: DE)
  Receive Date: 20230518
  Receipt Date: 20240910
  Transmission Date: 20241016
  Serious: Yes (Death, Congenital Anomaly, Other)
  Sender: UCB
  Company Number: None

PATIENT

DRUGS (4)
  1. LACOSAMIDE [Suspect]
     Active Substance: LACOSAMIDE
     Indication: Epilepsy
     Dosage: MATERNAL EXPOSURE DURING PREGNANCY, UNK, ONCE DAILY (QD)
     Route: 064
  2. LACOSAMIDE [Suspect]
     Active Substance: LACOSAMIDE
     Indication: Seizure
  3. CARBAMAZEPINE [Suspect]
     Active Substance: CARBAMAZEPINE
     Indication: Foetal exposure during pregnancy
     Dosage: MATERNAL EXPOSURE DURING PREGNANCY: UNK
     Route: 064
  4. CARBAMAZEPINE [Suspect]
     Active Substance: CARBAMAZEPINE
     Indication: Epilepsy

REACTIONS (6)
  - Hepatic arteriovenous malformation [Fatal]
  - Hydrops foetalis [Fatal]
  - Maternal exposure during pregnancy [Unknown]
  - Maternal exposure before pregnancy [Unknown]
  - Bradycardia neonatal [Unknown]
  - Premature baby [Unknown]
